FAERS Safety Report 8837030 (Version 1)
Quarter: 2012Q4

REPORT INFORMATION
  Report Type: 
  Country: US (occurrence: US)
  Receive Date: 20121012
  Receipt Date: 20121012
  Transmission Date: 20130627
  Serious: No
  Sender: FDA-Public Use
  Company Number: US-MYLANLABS-2012S1015995

PATIENT
  Age: 55 Year
  Sex: Female

DRUGS (1)
  1. IBANDRONATE SODIUM TABLETS [Suspect]
     Indication: OSTEOPENIA
     Route: 048
     Dates: start: 20120401, end: 20120701

REACTIONS (1)
  - Rash pruritic [Recovering/Resolving]
